FAERS Safety Report 4290173-6 (Version None)
Quarter: 2004Q1

REPORT INFORMATION
  Report Type: 
  Country: None (occurrence: None)
  Receive Date: 20040126
  Receipt Date: 20031027
  Transmission Date: 20041129
  Serious: No
  Sender: FDA-Public Use
  Company Number: USA030536474

PATIENT
  Age: 55 Year
  Sex: Female
  Weight: 59 kg

DRUGS (9)
  1. FORTEO [Suspect]
     Indication: OSTEOPOROSIS
     Dosage: 20 UG/ DAY
     Dates: start: 20030410
  2. PREDNISONE [Concomitant]
  3. ATROVENT [Concomitant]
  4. SINGULAIR [Concomitant]
  5. CALCIUM CITRATE [Concomitant]
  6. PREVICID [Concomitant]
  7. CELEXA [Concomitant]
  8. FLONASE [Concomitant]
  9. LORAZEPAM [Concomitant]

REACTIONS (6)
  - DYSPNOEA [None]
  - FATIGUE [None]
  - INJECTION SITE BURNING [None]
  - INJECTION SITE ERYTHEMA [None]
  - INJECTION SITE HAEMORRHAGE [None]
  - INJECTION SITE PAIN [None]
